FAERS Safety Report 9671497 (Version 2)
Quarter: 2013Q4

REPORT INFORMATION
  Report Type: Spontaneous
  Country: US (occurrence: US)
  Receive Date: 20131106
  Receipt Date: 20131126
  Transmission Date: 20140711
  Serious: No
  Sender: FDA-Public Use
  Company Number: US-PFIZER INC-2013314752

PATIENT
  Age: 69 Year
  Sex: Male

DRUGS (5)
  1. LIDOCAINE HCL [Suspect]
     Dosage: UNK
  2. AVANDIA [Suspect]
     Indication: HYPERTENSION
     Dosage: 2 MG
     Route: 048
     Dates: start: 20070409
  3. AVANDIA [Suspect]
     Dosage: 4 MG
     Route: 048
     Dates: start: 20080924, end: 20081125
  4. LIPITOR [Concomitant]
     Dosage: UNK
     Dates: start: 20070129, end: 20121207
  5. METFORMIN [Concomitant]
     Dosage: UNK
     Dates: start: 20070129

REACTIONS (2)
  - Drug hypersensitivity [Unknown]
  - Blood pressure increased [Recovered/Resolved]
